FAERS Safety Report 4858841-2 (Version None)
Quarter: 2005Q4

REPORT INFORMATION
  Report Type: 
  Country: None (occurrence: None)
  Receive Date: 20051219
  Receipt Date: 20050818
  Transmission Date: 20060501
  Serious: No
  Sender: FDA-Public Use
  Company Number: US-GLAXOSMITHKLINE-A0570770A

PATIENT
  Age: 29 Year
  Sex: Female

DRUGS (3)
  1. NICODERM CQ [Suspect]
     Dates: start: 20050817, end: 20050818
  2. ANTIDEPRESSANT [Concomitant]
  3. PAIN MEDICATION [Concomitant]

REACTIONS (4)
  - ASTHENIA [None]
  - DYSPNOEA [None]
  - HEART RATE INCREASED [None]
  - TREMOR [None]
